FAERS Safety Report 4846882-0 (Version None)
Quarter: 2005Q4

REPORT INFORMATION
  Report Type: 
  Country: None (occurrence: None)
  Receive Date: 20051201
  Receipt Date: 20051123
  Transmission Date: 20060501
  Serious: Yes (Other)
  Sender: FDA-Public Use
  Company Number: CHPA2005US07138

PATIENT
  Age: 48 Year
  Sex: Female
  Weight: 63 kg

DRUGS (2)
  1. PRIVATE LABEL STEP 1 21MG ACCT UNKNOWN (NCH) (NICOTINE) [Suspect]
     Indication: SMOKING CESSATION THERAPY
     Dosage: 21 MG, QD, TRANSDERMAL
     Route: 062
     Dates: start: 20051001, end: 20051002
  2. ESTROVEN [Concomitant]

REACTIONS (2)
  - ANXIETY [None]
  - GRAND MAL CONVULSION [None]
